FAERS Safety Report 4577107-1 (Version None)
Quarter: 2005Q1

REPORT INFORMATION
  Report Type: 
  Country: None (occurrence: None)
  Receive Date: 20050208
  Receipt Date: 20050201
  Transmission Date: 20050727
  Serious: No
  Sender: FDA-Public Use
  Company Number: TPA2005A00120

PATIENT
  Age: 56 Year
  Sex: Female
  Weight: 70.7611 kg

DRUGS (5)
  1. ACTOS [Suspect]
     Indication: DIABETES MELLITUS NON-INSULIN-DEPENDENT
     Dosage: 75 MG, 1 IN 1 D, PER ORAL
     Route: 048
  2. COUMADIN (WARFARIN-(5 MILLIGRAM) [Concomitant]
  3. LIPITOR (ATORVASTATIN)(10 MILLIGRAMS) [Concomitant]
  4. WELLBUTRIN SR(BUPROPION) (300 MILLIGRAM) [Concomitant]
  5. MAGNESIUM (MAGNESIUM)(250 MILLIGRAM) [Concomitant]

REACTIONS (1)
  - UNEVALUABLE EVENT [None]
